FAERS Safety Report 8096605-X (Version None)
Quarter: 2012Q1

REPORT INFORMATION
  Report Type: 
  Country: None (occurrence: None)
  Receive Date: 20120129
  Receipt Date: 20111201
  Transmission Date: 20120608
  Serious: No
  Sender: FDA-Public Use
  Company Number: US-ABBOTT-11P-163-0879991-00

PATIENT
  Age: 67 Year
  Sex: Male

DRUGS (5)
  1. NORVASC [Concomitant]
     Indication: HYPERTENSION
     Dates: start: 20110401
  2. HYZAAR [Concomitant]
     Indication: HYPERTENSION
     Dosage: 100/25
  3. TOPROLOL [Concomitant]
     Indication: HYPERTENSION
  4. HUMIRA [Suspect]
     Indication: PSORIASIS
     Dates: start: 20100101, end: 20110601
  5. LIPITOR [Concomitant]
     Indication: BLOOD CHOLESTEROL INCREASED

REACTIONS (1)
  - RASH PRURITIC [None]
